FAERS Safety Report 4299990-X (Version None)
Quarter: 2004Q1

REPORT INFORMATION
  Report Type: 
  Country: None (occurrence: None)
  Receive Date: 20040218
  Receipt Date: 20040205
  Transmission Date: 20041129
  Serious: Yes (Hospitalization)
  Sender: FDA-Public Use
  Company Number: JP-JNJFOC-20040104293

PATIENT
  Age: 72 Year
  Sex: Female
  Weight: 44 kg

DRUGS (13)
  1. REMICADE [Suspect]
     Indication: RHEUMATOID ARTHRITIS
     Dosage: 3 MG/KG, 1 IN 1 AS NECESSARY, INTRAVENOUS DRIP; SEE IMAGE
     Route: 041
     Dates: start: 20031002, end: 20031002
  2. REMICADE [Suspect]
     Indication: RHEUMATOID ARTHRITIS
     Dosage: 3 MG/KG, 1 IN 1 AS NECESSARY, INTRAVENOUS DRIP; SEE IMAGE
     Route: 041
     Dates: start: 20031115, end: 20031115
  3. REMICADE [Suspect]
     Indication: RHEUMATOID ARTHRITIS
     Dosage: 3 MG/KG, 1 IN 1 AS NECESSARY, INTRAVENOUS DRIP; SEE IMAGE
     Route: 041
     Dates: start: 20040108, end: 20040108
  4. RHEUMATREX [Suspect]
     Indication: RHEUMATOID ARTHRITIS
     Dosage: 6 MG, IN 1 WEEK, ORAL; SEE IMAGE
     Route: 048
     Dates: start: 20000426, end: 20010724
  5. RHEUMATREX [Suspect]
     Indication: RHEUMATOID ARTHRITIS
     Dosage: 6 MG, IN 1 WEEK, ORAL; SEE IMAGE
     Route: 048
     Dates: start: 20010725, end: 20021110
  6. RHEUMATREX [Suspect]
     Indication: RHEUMATOID ARTHRITIS
     Dosage: 6 MG, IN 1 WEEK, ORAL; SEE IMAGE
     Route: 048
     Dates: start: 20021111, end: 20030522
  7. RHEUMATREX [Suspect]
     Indication: RHEUMATOID ARTHRITIS
     Dosage: 6 MG, IN 1 WEEK, ORAL; SEE IMAGE
     Route: 048
     Dates: start: 20030523, end: 20030917
  8. RHEUMATREX [Suspect]
     Indication: RHEUMATOID ARTHRITIS
     Dosage: 6 MG, IN 1 WEEK, ORAL; SEE IMAGE
     Route: 048
     Dates: start: 20030918, end: 20040119
  9. METHOTREXATE [Concomitant]
  10. PREDNISOLONE [Concomitant]
  11. INDOMETACIN (INDOMETACIN) CAPSULES [Concomitant]
  12. FOLIAMIN (FOLIC ACID) TABLETS [Concomitant]
  13. TAKEPRON (LASNOPRAZOLE) CAPSULES [Concomitant]

REACTIONS (4)
  - CONDITION AGGRAVATED [None]
  - INTERSTITIAL LUNG DISEASE [None]
  - NASOPHARYNGITIS [None]
  - PNEUMOCYSTIS CARINII PNEUMONIA [None]
